FAERS Safety Report 14158588 (Version 2)
Quarter: 2017Q4

REPORT INFORMATION
  Report Type: Report from Study
  Country: US (occurrence: US)
  Receive Date: 20171106
  Receipt Date: 20171115
  Transmission Date: 20180321
  Serious: Yes (Hospitalization, Other)
  Sender: FDA-Public Use
  Company Number: US-ROCHE-2017509

PATIENT
  Sex: Female

DRUGS (1)
  1. CELLCEPT [Suspect]
     Active Substance: MYCOPHENOLATE MOFETIL\MYCOPHENOLATE MOFETIL HYDROCHLORIDE
     Indication: AUTOIMMUNE HEPATITIS
     Dosage: ^250MG CAPSULE. 1000MG, 4 CAPS BID.^
     Route: 048

REACTIONS (29)
  - Heart rate increased [Recovering/Resolving]
  - Sinus congestion [Unknown]
  - Carbon dioxide decreased [Unknown]
  - Blood bilirubin increased [Unknown]
  - C-reactive protein increased [Unknown]
  - Diarrhoea [Recovering/Resolving]
  - Abdominal tenderness [Unknown]
  - Blood urea decreased [Unknown]
  - Alanine aminotransferase increased [Unknown]
  - Hepatitis [Unknown]
  - Off label use [Unknown]
  - Red blood cell count decreased [Unknown]
  - Haematocrit decreased [Unknown]
  - Blood alkaline phosphatase increased [Unknown]
  - Myalgia [Unknown]
  - Oedema [Unknown]
  - Nausea [Recovering/Resolving]
  - Eosinophil count increased [Unknown]
  - Blood albumin decreased [Unknown]
  - Weight decreased [Unknown]
  - Vomiting [Recovering/Resolving]
  - Platelet count decreased [Unknown]
  - Aspartate aminotransferase increased [Unknown]
  - Intentional product use issue [Unknown]
  - Mean cell haemoglobin increased [Unknown]
  - Red cell distribution width increased [Unknown]
  - Lymphocyte count increased [Unknown]
  - Fatigue [Unknown]
  - Oropharyngeal pain [Recovering/Resolving]
